FAERS Safety Report 6716389-4 (Version None)
Quarter: 2010Q2

REPORT INFORMATION
  Report Type: 
  Country: None (occurrence: None)
  Receive Date: 20100507
  Receipt Date: 20100419
  Transmission Date: 20101027
  Serious: No
  Sender: FDA-Public Use
  Company Number: US-BAYER-201020198NA

PATIENT
  Sex: Male

DRUGS (2)
  1. CAMPATH [Suspect]
     Indication: CHRONIC LYMPHOCYTIC LEUKAEMIA
     Dosage: TOTAL DAILY DOSE: 30 MG
     Dates: start: 20100301
  2. DEMEROL [Concomitant]
     Indication: CHEMOTHERAPY CYTOKINE PROPHYLAXIS

REACTIONS (1)
  - SKIN LESION [None]
